FAERS Safety Report 9776339 (Version 1)
Quarter: 2013Q4

REPORT INFORMATION
  Report Type: Spontaneous
  Country: US (occurrence: US)
  Receive Date: 20131220
  Receipt Date: 20131220
  Transmission Date: 20140711
  Serious: Yes (Other)
  Sender: FDA-Public Use
  Company Number: PHHY2013US148323

PATIENT
  Age: 54 Year
  Sex: Female

DRUGS (6)
  1. DOXORUBICIN [Suspect]
     Indication: INVASIVE DUCTAL BREAST CARCINOMA
  2. CYCLOPHOSPHAMIDE [Suspect]
     Indication: INVASIVE DUCTAL BREAST CARCINOMA
  3. PEGFILGRASTIM [Concomitant]
     Indication: INVASIVE DUCTAL BREAST CARCINOMA
  4. ABRAXANE [Concomitant]
     Indication: INVASIVE DUCTAL BREAST CARCINOMA
     Dosage: 125 MG/M2
  5. LEVOFLOXACIN [Concomitant]
  6. WINTHROP [Suspect]
     Indication: INVASIVE DUCTAL BREAST CARCINOMA

REACTIONS (9)
  - Palmar-plantar erythrodysaesthesia syndrome [Unknown]
  - Erythema [Unknown]
  - Pain [Unknown]
  - Blister [Unknown]
  - Local swelling [Unknown]
  - Skin exfoliation [Unknown]
  - Hypoaesthesia [Unknown]
  - Mucosal inflammation [Unknown]
  - Arthralgia [Unknown]
